FAERS Safety Report 8940140 (Version 4)
Quarter: 2013Q1

REPORT INFORMATION
  Report Type: Report from Study
  Country: CA (occurrence: CA)
  Receive Date: 20121130
  Receipt Date: 20130128
  Transmission Date: 20140127
  Serious: Yes (Death, Hospitalization, Other)
  Sender: FDA-Public Use
  Company Number: CA-ABBOTT-12P-028-1012169-00

PATIENT
  Age: 82 Year
  Sex: Male

DRUGS (4)
  1. LUPRON DEPOT [Suspect]
     Indication: PROSTATE CANCER
     Route: 030
     Dates: start: 20120326, end: 20120917
  2. LIPITOR [Concomitant]
     Indication: PRODUCT USED FOR UNKNOWN INDICATION
     Route: 048
  3. DETROL [Concomitant]
     Indication: PRODUCT USED FOR UNKNOWN INDICATION
     Route: 048
  4. ASA [Concomitant]
     Indication: PRODUCT USED FOR UNKNOWN INDICATION
     Route: 048

REACTIONS (24)
  - Intestinal mass [Fatal]
  - Delirium [Unknown]
  - Colon cancer metastatic [Fatal]
  - Sepsis [Unknown]
  - General physical health deterioration [Unknown]
  - Decreased appetite [Unknown]
  - Hypophagia [Unknown]
  - Fluid intake reduced [Unknown]
  - Chills [Recovered/Resolved]
  - Tremor [Recovered/Resolved]
  - Dysphagia [Unknown]
  - Urinary tract infection enterococcal [Unknown]
  - Hypotension [Recovered/Resolved]
  - Haemodynamic instability [Recovered/Resolved]
  - Cachexia [Unknown]
  - White blood cell count abnormal [Unknown]
  - Neutrophil toxic granulation present [Unknown]
  - Leukocyte vacuolisation [Unknown]
  - Haemoglobin abnormal [Unknown]
  - Blood creatinine abnormal [Unknown]
  - Pulmonary mass [Unknown]
  - Metastatic neoplasm [Unknown]
  - Intestinal obstruction [Unknown]
  - Urosepsis [Unknown]
